FAERS Safety Report 7806576-6 (Version None)
Quarter: 2011Q4

REPORT INFORMATION
  Report Type: 
  Country: None (occurrence: None)
  Receive Date: 20111007
  Receipt Date: 20111007
  Transmission Date: 20120403
  Serious: Yes (Hospitalization)
  Sender: FDA-Public Use
  Company Number: None

PATIENT
  Age: 53 Year
  Sex: Male
  Weight: 79.1 kg

DRUGS (1)
  1. RIFAMPIN [Suspect]
     Indication: LATENT TUBERCULOSIS
     Dosage: 600 MG EVERY DAY PO
     Route: 048
     Dates: start: 20110707, end: 20110805

REACTIONS (1)
  - PANCREATITIS [None]
